FAERS Safety Report 13351972 (Version 1)
Quarter: 2017Q1

REPORT INFORMATION
  Report Type: Spontaneous
  Country: US (occurrence: US)
  Receive Date: 20170320
  Receipt Date: 20170320
  Transmission Date: 20170429
  Serious: No
  Sender: FDA-Public Use
  Company Number: US-SA-2016SA043930

PATIENT
  Age: 69 Year
  Sex: Female

DRUGS (1)
  1. NASACORT ALLERGY 24HR [Suspect]
     Active Substance: TRIAMCINOLONE ACETONIDE
     Indication: RHINITIS ALLERGIC
     Dosage: DOSE:ONE SPRAY PER NOSTRIL FOR TWO DAYS
     Route: 045

REACTIONS (6)
  - Pain [Unknown]
  - Sunburn [Unknown]
  - Eye swelling [Unknown]
  - Erythema [Unknown]
  - Pruritus [Unknown]
  - Ear discomfort [Unknown]
